FAERS Safety Report 21443667 (Version 1)
Quarter: 2022Q4

REPORT INFORMATION
  Report Type: Spontaneous
  Country: US (occurrence: US)
  Receive Date: 20221012
  Receipt Date: 20221012
  Transmission Date: 20230113
  Serious: No
  Sender: FDA-Public Use
  Company Number: US-TEVA-2022-US-2068166

PATIENT
  Age: 74 Year
  Sex: Male

DRUGS (1)
  1. ALBUTEROL SULFATE [Suspect]
     Active Substance: ALBUTEROL SULFATE
     Indication: Dyspnoea
     Dosage: 90 MCG/DOSE,2 PUFFS 4 TIMES A DAY
     Route: 055

REACTIONS (2)
  - Feeling jittery [Unknown]
  - Circumstance or information capable of leading to medication error [Unknown]
